FAERS Safety Report 11308813 (Version 1)
Quarter: 2015Q3

REPORT INFORMATION
  Report Type: Spontaneous
  Country: CA (occurrence: CA)
  Receive Date: 20150724
  Receipt Date: 20150724
  Transmission Date: 20151125
  Serious: Yes (Other)
  Sender: FDA-Public Use
  Company Number: CA-ELI_LILLY_AND_COMPANY-CA201507004199

PATIENT
  Sex: Male

DRUGS (2)
  1. TRAZODONE [Concomitant]
     Active Substance: TRAZODONE HYDROCHLORIDE
     Indication: INSOMNIA
     Dosage: UNK, UNKNOWN
     Route: 065
  2. CYMBALTA [Suspect]
     Active Substance: DULOXETINE HYDROCHLORIDE
     Indication: PRODUCT USED FOR UNKNOWN INDICATION
     Dosage: UNK, UNKNOWN
     Route: 065
     Dates: start: 20130206

REACTIONS (24)
  - Pharyngeal disorder [Unknown]
  - Choking [Unknown]
  - Abnormal behaviour [Unknown]
  - Confusional state [Unknown]
  - Disturbance in attention [Unknown]
  - Headache [Unknown]
  - Anxiety [Unknown]
  - Personality change [Unknown]
  - Oesophageal disorder [Unknown]
  - Pharyngeal inflammation [Unknown]
  - Disorientation [Unknown]
  - Memory impairment [Unknown]
  - Suicide attempt [Unknown]
  - Abdominal discomfort [Unknown]
  - Illogical thinking [Unknown]
  - Personality disorder [Unknown]
  - Dysphonia [Unknown]
  - Panic attack [Unknown]
  - Fatigue [Unknown]
  - Wrong technique in product usage process [Unknown]
  - Suicidal ideation [Unknown]
  - Depression [Unknown]
  - Thinking abnormal [Unknown]
  - Dysphagia [Unknown]

NARRATIVE: CASE EVENT DATE: 20130612
